FAERS Safety Report 9424278 (Version 1)
Quarter: 2013Q3

REPORT INFORMATION
  Report Type: Spontaneous
  Country: US (occurrence: US)
  Receive Date: 20130729
  Receipt Date: 20130729
  Transmission Date: 20140515
  Serious: Yes (Hospitalization)
  Sender: FDA-Public Use
  Company Number: US-JNJFOC-20130711817

PATIENT
  Age: 33 Year
  Sex: Male

DRUGS (3)
  1. INVEGA SUSTENNA [Suspect]
     Indication: AGGRESSION
     Route: 030
     Dates: start: 20130716, end: 20130716
  2. INVEGA SUSTENNA [Suspect]
     Indication: AGGRESSION
     Route: 030
     Dates: start: 20130709, end: 20130709
  3. PENICILLIN [Concomitant]
     Indication: PRODUCT USED FOR UNKNOWN INDICATION
     Route: 065

REACTIONS (1)
  - Hospitalisation [Recovered/Resolved]
